FAERS Safety Report 9377461 (Version 1)
Quarter: 2013Q3

REPORT INFORMATION
  Report Type: Spontaneous
  Country: US (occurrence: US)
  Receive Date: 20130701
  Receipt Date: 20130701
  Transmission Date: 20140515
  Serious: Yes (Hospitalization)
  Sender: FDA-Public Use
  Company Number: US-JNJFOC-20130613000

PATIENT
  Sex: Female
  Weight: 56.7 kg

DRUGS (5)
  1. DURAGESIC [Suspect]
     Indication: PAIN
     Route: 062
     Dates: start: 1994
  2. DURAGESIC [Suspect]
     Indication: PAIN
     Route: 062
  3. OXYCODONE [Suspect]
     Indication: BREAKTHROUGH PAIN
     Route: 048
  4. OXYCODONE [Suspect]
     Indication: BREAKTHROUGH PAIN
     Route: 048
     Dates: start: 2003
  5. AMPHETAMINE [Suspect]
     Indication: PRODUCT USED FOR UNKNOWN INDICATION
     Route: 065

REACTIONS (6)
  - Basedow^s disease [Recovered/Resolved]
  - Weight increased [Not Recovered/Not Resolved]
  - Malaise [Not Recovered/Not Resolved]
  - Drug screen negative [Not Recovered/Not Resolved]
  - Drug ineffective [Not Recovered/Not Resolved]
  - Urine amphetamine positive [Not Recovered/Not Resolved]
